FAERS Safety Report 20244997 (Version 11)
Quarter: 2022Q3

REPORT INFORMATION
  Report Type: Spontaneous
  Country: US (occurrence: US)
  Receive Date: 20211229
  Receipt Date: 20220926
  Transmission Date: 20221026
  Serious: Yes (Hospitalization, Other)
  Sender: FDA-Public Use
  Company Number: US-BEH-2021139654

PATIENT
  Age: 27 Year
  Sex: Female

DRUGS (27)
  1. BERINERT [Suspect]
     Active Substance: HUMAN C1-ESTERASE INHIBITOR
     Indication: Hereditary angioedema
     Dosage: 1700 INTERNATIONAL UNIT, PRN
     Route: 042
     Dates: start: 20211210
  2. BERINERT [Suspect]
     Active Substance: HUMAN C1-ESTERASE INHIBITOR
     Indication: Hereditary angioedema
     Dosage: 1700 INTERNATIONAL UNIT, PRN
     Route: 042
     Dates: start: 20211210
  3. BERINERT [Suspect]
     Active Substance: HUMAN C1-ESTERASE INHIBITOR
     Indication: Hereditary angioedema
     Dosage: 1700 INTERNATIONAL UNIT, PRN
     Route: 042
     Dates: start: 20211210
  4. BERINERT [Suspect]
     Active Substance: HUMAN C1-ESTERASE INHIBITOR
     Indication: Hereditary angioedema
     Dosage: 1700 INTERNATIONAL UNIT, PRN
     Route: 042
     Dates: start: 20211210
  5. BERINERT [Suspect]
     Active Substance: HUMAN C1-ESTERASE INHIBITOR
     Dosage: 1700 INTERNATIONAL UNIT, PRN
     Route: 042
     Dates: start: 20211217
  6. BERINERT [Suspect]
     Active Substance: HUMAN C1-ESTERASE INHIBITOR
     Dosage: 1700 INTERNATIONAL UNIT, PRN
     Route: 042
     Dates: start: 20211217
  7. BERINERT [Suspect]
     Active Substance: HUMAN C1-ESTERASE INHIBITOR
     Dosage: 1700 INTERNATIONAL UNIT, PRN
     Route: 042
     Dates: start: 20211217
  8. BERINERT [Suspect]
     Active Substance: HUMAN C1-ESTERASE INHIBITOR
     Dosage: 1700 INTERNATIONAL UNIT, PRN
     Route: 042
     Dates: start: 20211217
  9. BERINERT [Suspect]
     Active Substance: HUMAN C1-ESTERASE INHIBITOR
     Dosage: 1700 INTERNATIONAL UNIT, PRN
     Route: 042
     Dates: start: 202112
  10. BERINERT [Suspect]
     Active Substance: HUMAN C1-ESTERASE INHIBITOR
     Dosage: 1700 INTERNATIONAL UNIT, PRN
     Route: 042
     Dates: start: 202112
  11. BERINERT [Suspect]
     Active Substance: HUMAN C1-ESTERASE INHIBITOR
     Dosage: 1700 INTERNATIONAL UNIT, PRN
     Route: 042
     Dates: start: 202112
  12. BERINERT [Suspect]
     Active Substance: HUMAN C1-ESTERASE INHIBITOR
     Dosage: 1700 INTERNATIONAL UNIT, PRN
     Route: 042
     Dates: start: 202112
  13. BERINERT [Suspect]
     Active Substance: HUMAN C1-ESTERASE INHIBITOR
     Dosage: 1700 INTERNATIONAL UNIT, PRN
     Route: 042
     Dates: start: 202202
  14. BERINERT [Suspect]
     Active Substance: HUMAN C1-ESTERASE INHIBITOR
     Dosage: 1700 INTERNATIONAL UNIT, PRN
     Route: 042
     Dates: start: 202202
  15. BERINERT [Suspect]
     Active Substance: HUMAN C1-ESTERASE INHIBITOR
     Dosage: 1700 INTERNATIONAL UNIT, PRN
     Route: 042
     Dates: start: 202202
  16. BERINERT [Suspect]
     Active Substance: HUMAN C1-ESTERASE INHIBITOR
     Dosage: 1700 INTERNATIONAL UNIT, PRN
     Route: 042
     Dates: start: 202202
  17. BERINERT [Suspect]
     Active Substance: HUMAN C1-ESTERASE INHIBITOR
     Dosage: 1000 INTERNATIONAL UNIT/KILOGRAM AS ORDERED
     Route: 042
  18. BERINERT [Suspect]
     Active Substance: HUMAN C1-ESTERASE INHIBITOR
     Dosage: 1000 INTERNATIONAL UNIT/KILOGRAM AS ORDERED
     Route: 042
  19. BERINERT [Suspect]
     Active Substance: HUMAN C1-ESTERASE INHIBITOR
     Dosage: 1000 INTERNATIONAL UNIT/KILOGRAM AS ORDERED
     Route: 042
  20. BERINERT [Suspect]
     Active Substance: HUMAN C1-ESTERASE INHIBITOR
     Dosage: 1000 INTERNATIONAL UNIT/KILOGRAM AS ORDERED
     Route: 042
  21. BERINERT [Suspect]
     Active Substance: HUMAN C1-ESTERASE INHIBITOR
     Dosage: UNK
     Route: 042
  22. BERINERT [Suspect]
     Active Substance: HUMAN C1-ESTERASE INHIBITOR
     Dosage: UNK
     Route: 042
  23. BERINERT [Suspect]
     Active Substance: HUMAN C1-ESTERASE INHIBITOR
     Dosage: UNK
     Route: 042
  24. BERINERT [Suspect]
     Active Substance: HUMAN C1-ESTERASE INHIBITOR
     Dosage: UNK
     Route: 042
  25. CINRYZE [Concomitant]
     Active Substance: HUMAN C1-ESTERASE INHIBITOR
     Indication: Hereditary angioedema
     Dosage: 1000 INTERNATIONAL UNIT
     Route: 065
  26. CINRYZE [Concomitant]
     Active Substance: HUMAN C1-ESTERASE INHIBITOR
     Dosage: 1500 INTERNATIONAL UNIT
     Route: 065
  27. CINRYZE [Concomitant]
     Active Substance: HUMAN C1-ESTERASE INHIBITOR
     Dosage: 1500 INTERNATIONAL UNIT
     Route: 065
     Dates: start: 20220315

REACTIONS (10)
  - Hereditary angioedema [Recovered/Resolved]
  - Product distribution issue [Recovered/Resolved]
  - Stress [Recovering/Resolving]
  - Insurance issue [Recovering/Resolving]
  - Hereditary angioedema [Recovered/Resolved]
  - Product supply issue [Recovered/Resolved]
  - Hereditary angioedema [Unknown]
  - Hereditary angioedema [Unknown]
  - Hereditary angioedema [Recovered/Resolved]
  - Hereditary angioedema [Recovered/Resolved]

NARRATIVE: CASE EVENT DATE: 20211211
